FAERS Safety Report 6176146-7 (Version None)
Quarter: 2009Q2

REPORT INFORMATION
  Report Type: 
  Country: None (occurrence: None)
  Receive Date: 20090501
  Receipt Date: 20090423
  Transmission Date: 20091009
  Serious: Yes (Life-Threatening, Hospitalization)
  Sender: FDA-Public Use
  Company Number: US-ELI_LILLY_AND_COMPANY-US200904005319

PATIENT
  Age: 49 Year
  Sex: Female

DRUGS (7)
  1. ZYPREXA [Suspect]
     Indication: BIPOLAR DISORDER
     Dosage: 2.5 MG, EACH MORNING
  2. ZYPREXA [Suspect]
     Dosage: 5 MG, EACH EVENING
  3. ZYPREXA [Suspect]
     Dosage: 1 D/F, UNK
     Dates: start: 20090401
  4. LITHIUM CARBONATE [Concomitant]
  5. BENZTROPINE [Concomitant]
  6. FISH OIL [Concomitant]
  7. MULTI-VITAMIN [Concomitant]

REACTIONS (15)
  - ABNORMAL BEHAVIOUR [None]
  - ACTIVITIES OF DAILY LIVING IMPAIRED [None]
  - BLOOD PRESSURE INCREASED [None]
  - CHOKING [None]
  - CRYING [None]
  - DRUG INEFFECTIVE [None]
  - FLUID INTAKE REDUCED [None]
  - FOOD AVERSION [None]
  - HALLUCINATION, AUDITORY [None]
  - OPISTHOTONUS [None]
  - OROMANDIBULAR DYSTONIA [None]
  - OVERWEIGHT [None]
  - PARKINSONIAN REST TREMOR [None]
  - POLLAKIURIA [None]
  - TIC [None]
